FAERS Safety Report 5397491-9 (Version None)
Quarter: 2007Q3

REPORT INFORMATION
  Report Type: 
  Country: None (occurrence: None)
  Receive Date: 20070726
  Receipt Date: 20070716
  Transmission Date: 20080115
  Serious: Yes (Life-Threatening)
  Sender: FDA-Public Use
  Company Number: SA-AMGEN-UK234120

PATIENT
  Age: 47 Year
  Sex: Female

DRUGS (1)
  1. NEUPOGEN [Suspect]
     Indication: NEUTROPENIA
     Route: 058
     Dates: start: 20070414, end: 20070414

REACTIONS (2)
  - CHEST PAIN [None]
  - HYPOTENSION [None]
